FAERS Safety Report 18281158 (Version 11)
Quarter: 2023Q2

REPORT INFORMATION
  Report Type: Other
  Country: CA (occurrence: None)
  Receive Date: 20200918
  Receipt Date: 20230605
  Transmission Date: 20230722
  Serious: No
  Sender: FDA-Public Use
  Company Number: CA-ROCHE-2397105

PATIENT
  Age: 37 Year
  Sex: Female

DRUGS (6)
  1. OCREVUS [Suspect]
     Active Substance: OCRELIZUMAB
     Indication: Relapsing-remitting multiple sclerosis
     Dosage: 300 MG AT DAY 0 AND 14, THEN 600 MG EVERY 6 MONTH
     Route: 042
     Dates: start: 20180919
  2. CARBAMAZEPINE [Concomitant]
     Active Substance: CARBAMAZEPINE
     Indication: Trigeminal neuralgia
  3. COLLAGEN [Concomitant]
     Active Substance: COLLAGEN
  4. MENOPUR [Concomitant]
     Active Substance: FOLLITROPIN\LUTEINIZING HORMONE
  5. ORGALUTRAN [Concomitant]
     Active Substance: GANIRELIX ACETATE
  6. LUPRON [Concomitant]
     Active Substance: LEUPROLIDE ACETATE

REACTIONS (7)
  - Heart rate increased [Not Recovered/Not Resolved]
  - Fungal infection [Unknown]
  - Bronchitis [Recovered/Resolved]
  - Cough [Recovering/Resolving]
  - Urinary tract infection [Recovered/Resolved]
  - Muscle tightness [Not Recovered/Not Resolved]
  - Trigeminal neuralgia [Recovered/Resolved]

NARRATIVE: CASE EVENT DATE: 20190831
